FAERS Safety Report 8448730-9 (Version None)
Quarter: 2012Q2

REPORT INFORMATION
  Report Type: 
  Country: None (occurrence: None)
  Receive Date: 20120619
  Receipt Date: 20120613
  Transmission Date: 20120825
  Serious: Yes (Death, Congenital Anomaly, Other)
  Sender: FDA-Public Use
  Company Number: US-PFIZER INC-2011243467

PATIENT
  Sex: Male
  Weight: 1.4 kg

DRUGS (1)
  1. ZOLOFT [Suspect]
     Dosage: UNK
     Route: 064

REACTIONS (5)
  - MATERNAL EXPOSURE TIMING UNSPECIFIED [None]
  - CONGENITAL ANOMALY [None]
  - SPINA BIFIDA [None]
  - CARDIAC ARREST [None]
  - KYPHOSIS [None]
